FAERS Safety Report 17850655 (Version 1)
Quarter: 2020Q2

REPORT INFORMATION
  Report Type: Spontaneous
  Country: US (occurrence: US)
  Receive Date: 20200602
  Receipt Date: 20200602
  Transmission Date: 20200714
  Serious: Yes (Other)
  Sender: FDA-Public Use
  Company Number: US-PFIZER INC-2020-07916

PATIENT
  Age: 74 Year
  Sex: Male
  Weight: 101.4 kg

DRUGS (20)
  1. GLYCERYL TRINITRATE [Concomitant]
     Active Substance: NITROGLYCERIN
     Dosage: 0.4 MG (0.4 MG TABLET, SUBLINGUAL PLACE 1 TABLET BY SUBLINGUAL ROUTE)
     Route: 060
  2. MEKTOVI [Suspect]
     Active Substance: BINIMETINIB
     Indication: BLADDER CANCER
     Dosage: 45 MG, 2X/DAY
     Route: 048
     Dates: start: 20200320, end: 20200423
  3. XARELTO [Concomitant]
     Active Substance: RIVAROXABAN
     Dosage: 15 MG, 2X/DAY (TAKE 15 MG TWICE DAILY FOR THE ?RST 21 DAYS, THEN TAKE 20 MG DAILY)
     Route: 048
  4. BRAFTOVI [Suspect]
     Active Substance: ENCORAFENIB
     Indication: BLADDER CANCER
     Dosage: 450 MG, 1X/DAY
     Route: 048
     Dates: start: 20200320, end: 20200423
  5. PROMETHAZINE [Concomitant]
     Active Substance: PROMETHAZINE HYDROCHLORIDE
     Indication: NAUSEA
     Dosage: 25 MG, AS NEEDED (1 TABLET ORALLY 4 TIMES PER DAY AS NEEDED)
     Route: 048
  6. VITAMIN D3 [Concomitant]
     Active Substance: CHOLECALCIFEROL
     Dosage: 100 IU, 1X/DAY
     Route: 048
  7. FUROSEMIDE. [Concomitant]
     Active Substance: FUROSEMIDE
     Dosage: 20 MG, 1X/DAY (1 TABLET ORALLY EVERY MORNING)
     Route: 048
  8. OLANZAPINE. [Concomitant]
     Active Substance: OLANZAPINE
     Dosage: 2.5 MG, DAILY (TAKE BEFORE CHEMOTHERAPY ON DAY 1 AND REPEAT DOSE ON DAYS 24; DOSE RANGE: 2.5-10 MG)
     Route: 048
  9. METHYLCOBALAMIN. [Concomitant]
     Active Substance: METHYLCOBALAMIN
     Dosage: 1000 UG, 1X/DAY
     Route: 060
  10. LISINOPRIL [LISINOPRIL DIHYDRATE] [Concomitant]
     Dosage: 20 MG, DAILY (20 MG TABLET TAKE 1 TABLET DAILY)
     Route: 048
  11. TRAMADOL [TRAMADOL HYDROCHLORIDE] [Concomitant]
     Active Substance: TRAMADOL HYDROCHLORIDE
     Dosage: 50 MG, 2X/DAY (1 TABLET ORALLY 2 TIMES PER DAY)
     Route: 048
  12. ATORVASTATIN [Concomitant]
     Active Substance: ATORVASTATIN
     Dosage: 80 MG, DAILY (TAKE 1 TABLET EVERY DAY)
     Route: 048
  13. ONDANSETRON [Concomitant]
     Active Substance: ONDANSETRON
     Indication: VOMITING
  14. XARELTO [Concomitant]
     Active Substance: RIVAROXABAN
     Dosage: 20 MG, DAILY (TAKE 15 MG TWICE DAILY FOR THE ?RST 21 DAYS, THEN TAKE 20 MG DAILY)
     Route: 048
  15. ASPIRIN 81 [Concomitant]
     Active Substance: ASPIRIN
     Dosage: 81 MG, 1X/DAY (EVERY 24 HOURS )
     Route: 048
  16. MAGNESIUM OXIDE. [Concomitant]
     Active Substance: MAGNESIUM OXIDE
     Dosage: 400 MG, DAILY (200 MG MAGNESIUM TABLET TAKE 2 TABLETS)
     Route: 048
  17. ONDANSETRON [Concomitant]
     Active Substance: ONDANSETRON
     Indication: NAUSEA
     Dosage: 8 MG, AS NEEDED (1 TABLET,DISINTEGRATING ORALLY EVERY 8 HOURS AS NEEDED )
     Route: 048
  18. PROMETHAZINE [Concomitant]
     Active Substance: PROMETHAZINE HYDROCHLORIDE
     Indication: VOMITING
  19. GABAPENTIN. [Concomitant]
     Active Substance: GABAPENTIN
     Dosage: 8 DF (TAKE 3 CAP IN THE MORNING, 2 CAP PO AFTERNOON, 3 CAP PO AT HS)
     Route: 048
  20. METOPROLOL. [Concomitant]
     Active Substance: METOPROLOL
     Dosage: 50 MG, DAILY
     Route: 048

REACTIONS (6)
  - Neoplasm progression [Unknown]
  - Off label use [Unknown]
  - Aspartate aminotransferase increased [Recovered/Resolved]
  - Hepatotoxicity [Recovering/Resolving]
  - Alanine aminotransferase increased [Recovering/Resolving]
  - Product use in unapproved indication [Unknown]

NARRATIVE: CASE EVENT DATE: 20200320
